FAERS Safety Report 13682519 (Version 1)
Quarter: 2017Q2

REPORT INFORMATION
  Report Type: Spontaneous
  Country: US (occurrence: US)
  Receive Date: 20170622
  Receipt Date: 20170622
  Transmission Date: 20170830
  Serious: No
  Sender: FDA-Public Use
  Company Number: None

PATIENT
  Age: 52 Year
  Sex: Female
  Weight: 58.11 kg

DRUGS (1)
  1. TASIGNA [Suspect]
     Active Substance: NILOTINIB
     Indication: MALAISE
     Dosage: TAKE 2 CAPSULES BY MOUTH EVERY 12 HOURS  PO
     Route: 048
     Dates: start: 20170613

REACTIONS (3)
  - Chest pain [None]
  - Breast tenderness [None]
  - Nausea [None]

NARRATIVE: CASE EVENT DATE: 20170613
